FAERS Safety Report 5896403-9 (Version None)
Quarter: 2008Q3

REPORT INFORMATION
  Report Type: 
  Country: None (occurrence: None)
  Receive Date: 20080924
  Receipt Date: 20070514
  Transmission Date: 20090109
  Serious: No
  Sender: FDA-Public Use
  Company Number: PR-BAYER-200711529BWH

PATIENT
  Age: 38 Year
  Sex: Male

DRUGS (2)
  1. AVELOX [Suspect]
     Indication: LARYNGITIS
     Route: 048
  2. ALLOPURINOL [Concomitant]
     Route: 048

REACTIONS (3)
  - MUSCLE SPASMS [None]
  - MYALGIA [None]
  - TREMOR [None]
